FAERS Safety Report 25632257 (Version 1)
Quarter: 2025Q3

REPORT INFORMATION
  Report Type: Spontaneous
  Country: EU (occurrence: EU)
  Receive Date: 20250801
  Receipt Date: 20250801
  Transmission Date: 20251021
  Serious: Yes (Other)
  Sender: TEVA
  Company Number: EU-TEVA-VS-3355961

PATIENT
  Age: 54 Year
  Sex: Male

DRUGS (2)
  1. TETRACYCLINE [Suspect]
     Active Substance: TETRACYCLINE
     Indication: Furuncle
     Dosage: 500 MG IN THE MORNING AND 500 MG IN THE EVENING, TETRACYCLINE HYDROCHLORIDE
     Route: 048
     Dates: start: 2015, end: 2023
  2. VITAMIN E [Suspect]
     Active Substance: .ALPHA.-TOCOPHEROL
     Indication: Product used for unknown indication
     Route: 065

REACTIONS (5)
  - Type 2 diabetes mellitus [Unknown]
  - Furuncle [Unknown]
  - Blood cholesterol increased [Unknown]
  - Product use issue [Unknown]
  - Overweight [Unknown]
